FAERS Safety Report 8807010 (Version 1)
Quarter: 2012Q4

REPORT INFORMATION
  Report Type: 
  Country: TR (occurrence: TR)
  Receive Date: 20120925
  Receipt Date: 20120925
  Transmission Date: 20130627
  Serious: Yes (Death, Hospitalization)
  Sender: FDA-Public Use
  Company Number: TR-JNJFOC-20120908402

PATIENT
  Age: 73 Year
  Sex: Male

DRUGS (2)
  1. DOXORUBICIN [Suspect]
     Indication: METASTASES TO STOMACH
     Route: 058
  2. CISPLATIN [Suspect]
     Indication: METASTASES TO STOMACH
     Route: 065

REACTIONS (2)
  - Death [Fatal]
  - Off label use [Unknown]
